FAERS Safety Report 4350864-5 (Version None)
Quarter: 2004Q2

REPORT INFORMATION
  Report Type: 
  Country: None (occurrence: None)
  Receive Date: 20040428
  Receipt Date: 20040415
  Transmission Date: 20050107
  Serious: Yes (Hospitalization, Other)
  Sender: FDA-Public Use
  Company Number: 2004026021

PATIENT
  Sex: Male
  Weight: 83.0083 kg

DRUGS (5)
  1. ZOLOFT [Suspect]
     Indication: ANXIETY
     Dosage: 200 MG (BID), ORAL
     Route: 048
     Dates: end: 20021001
  2. ZOLOFT [Suspect]
     Indication: DEPRESSION
     Dosage: 200 MG (BID), ORAL
     Route: 048
     Dates: end: 20021001
  3. ZOLOFT [Suspect]
     Indication: MOOD SWINGS
     Dosage: 200 MG (BID), ORAL
     Route: 048
     Dates: end: 20021001
  4. LITHIUM CARBONATE [Suspect]
     Indication: ILL-DEFINED DISORDER
     Dosage: ORAL
     Route: 048
  5. DRUG, UNSPECIFIED (DRUG , UNSPECIFIED) [Concomitant]

REACTIONS (8)
  - AGGRESSION [None]
  - FEELING DRUNK [None]
  - IMPAIRED WORK ABILITY [None]
  - INTENTIONAL OVERDOSE [None]
  - IRRITABILITY [None]
  - MENTAL IMPAIRMENT [None]
  - MOOD ALTERED [None]
  - SUICIDE ATTEMPT [None]
